FAERS Safety Report 13417162 (Version 1)
Quarter: 2017Q2

REPORT INFORMATION
  Report Type: Spontaneous
  Country: US (occurrence: US)
  Receive Date: 20170406
  Receipt Date: 20170406
  Transmission Date: 20170830
  Serious: Yes (Other)
  Sender: FDA-Public Use
  Company Number: US-TEVA-757098USA

PATIENT
  Sex: Male
  Weight: 72.64 kg

DRUGS (4)
  1. GABAPENTIN. [Concomitant]
     Active Substance: GABAPENTIN
  2. ROBAXIN [Concomitant]
     Active Substance: METHOCARBAMOL
  3. FENTANYL CITRATE. [Suspect]
     Active Substance: FENTANYL CITRATE
     Indication: PREOPERATIVE CARE
     Route: 048
  4. VALIUM [Concomitant]
     Active Substance: DIAZEPAM

REACTIONS (4)
  - Arthritis [Unknown]
  - Abasia [Unknown]
  - Intervertebral disc degeneration [Unknown]
  - Product use in unapproved indication [Unknown]
